FAERS Safety Report 6824865-9 (Version None)
Quarter: 2010Q3

REPORT INFORMATION
  Report Type: 
  Country: None (occurrence: None)
  Receive Date: 20100708
  Receipt Date: 20061214
  Transmission Date: 20110219
  Serious: No
  Sender: FDA-Public Use
  Company Number: US-PFIZER INC-2007001266

PATIENT
  Sex: Female
  Weight: 64.41 kg

DRUGS (6)
  1. CHANTIX [Suspect]
     Indication: SMOKING CESSATION THERAPY
     Dates: start: 20061110, end: 20061101
  2. PREMARIN [Concomitant]
  3. LIPITOR [Concomitant]
  4. NITROGLYCERIN [Concomitant]
  5. CALCIUM WITH VITAMIN D [Concomitant]
     Indication: MUSCLE SPASMS
  6. VITAMIN B-12 [Concomitant]
     Route: 048

REACTIONS (3)
  - ABNORMAL DREAMS [None]
  - SLEEP DISORDER [None]
  - SOMNOLENCE [None]
